FAERS Safety Report 4509707-9 (Version None)
Quarter: 2004Q4

REPORT INFORMATION
  Report Type: 
  Country: None (occurrence: None)
  Receive Date: 20041124
  Receipt Date: 20041115
  Transmission Date: 20050328
  Serious: Yes (Hospitalization)
  Sender: FDA-Public Use
  Company Number: US-JNJFOC-20040608538

PATIENT
  Sex: Female
  Weight: 48.99 kg

DRUGS (22)
  1. REMICADE [Suspect]
     Route: 042
  2. REMICADE [Suspect]
     Route: 042
  3. REMICADE [Suspect]
     Route: 042
  4. REMICADE [Suspect]
     Route: 042
  5. REMICADE [Suspect]
     Indication: RHEUMATOID ARTHRITIS
     Route: 042
  6. PREDNISONE [Concomitant]
     Dosage: DOSAGE AT THE TIME OF HER 22-JUL-03 HOSPITAL ADMISSION
  7. FOLIC ACID [Concomitant]
  8. NORVASC [Concomitant]
  9. NEXIUM [Concomitant]
  10. TYLENOL [Concomitant]
  11. ADVAIR [Concomitant]
  12. ADVAIR [Concomitant]
  13. MESALAMINE [Concomitant]
  14. VITAMIN C [Concomitant]
  15. DISALCID [Concomitant]
  16. PREVACID [Concomitant]
  17. CLARITIN [Concomitant]
  18. ALBUTEROL [Concomitant]
  19. SPIRIVA [Concomitant]
  20. COMBIVENT [Concomitant]
  21. COMBIVENT [Concomitant]
  22. CALCIUM [Concomitant]

REACTIONS (27)
  - ABDOMINAL DISTENSION [None]
  - ABDOMINAL PAIN [None]
  - ABDOMINAL PAIN UPPER [None]
  - ARTHRITIS [None]
  - BILIARY DILATATION [None]
  - BLOOD ALBUMIN DECREASED [None]
  - BLOOD BILIRUBIN DECREASED [None]
  - BLOOD POTASSIUM DECREASED [None]
  - CHOLELITHIASIS [None]
  - DEAFNESS [None]
  - GALLBLADDER OPERATION [None]
  - HAEMATOCRIT DECREASED [None]
  - HAEMOGLOBIN DECREASED [None]
  - HEADACHE [None]
  - HOARSENESS [None]
  - ILEUS [None]
  - IMMOBILE [None]
  - LIVER FUNCTION TEST ABNORMAL [None]
  - OROPHARYNGEAL SWELLING [None]
  - PANCREATITIS [None]
  - PROTEIN TOTAL DECREASED [None]
  - PYREXIA [None]
  - URINARY TRACT INFECTION [None]
  - UROSEPSIS [None]
  - WEIGHT INCREASED [None]
  - WHITE BLOOD CELL COUNT DECREASED [None]
  - WHITE BLOOD CELL COUNT INCREASED [None]
